FAERS Safety Report 26104530 (Version 1)
Quarter: 2025Q4

REPORT INFORMATION
  Report Type: Report from Study
  Country: US (occurrence: US)
  Receive Date: 20251130
  Receipt Date: 20251130
  Transmission Date: 20260117
  Serious: Yes (Other)
  Sender: ABBVIE
  Company Number: US-ABBVIE-6448485

PATIENT
  Age: 50 Year
  Sex: Female

DRUGS (2)
  1. CREON [Suspect]
     Active Substance: PANCRELIPASE AMYLASE\PANCRELIPASE LIPASE\PANCRELIPASE PROTEASE
     Indication: Pancreatic failure
     Route: 048
     Dates: start: 20250826, end: 20250902
  2. CREON [Suspect]
     Active Substance: PANCRELIPASE AMYLASE\PANCRELIPASE LIPASE\PANCRELIPASE PROTEASE
     Indication: Pancreatic failure
     Dosage: FIRST ADMIN DATE: 2025
     Route: 048

REACTIONS (3)
  - Pancreatic carcinoma [Not Recovered/Not Resolved]
  - Constipation [Not Recovered/Not Resolved]
  - Autoimmune pancreatitis [Unknown]

NARRATIVE: CASE EVENT DATE: 20250101
